FAERS Safety Report 7511042-1 (Version None)
Quarter: 2011Q2

REPORT INFORMATION
  Report Type: 
  Country: None (occurrence: None)
  Receive Date: 20110531
  Receipt Date: 20110524
  Transmission Date: 20111010
  Serious: No
  Sender: FDA-Public Use
  Company Number: US-PFIZER INC-2011112816

PATIENT
  Sex: Female
  Weight: 55.329 kg

DRUGS (5)
  1. PREMARIN [Suspect]
     Indication: VAGINAL HAEMORRHAGE
  2. PREMARIN [Suspect]
     Indication: VULVOVAGINAL DRYNESS
     Dosage: UNK
     Route: 067
     Dates: start: 20110519, end: 20110522
  3. ZOLOFT [Concomitant]
     Dosage: 25 MG, DAILY
     Route: 048
  4. AMITRIPTYLINE [Concomitant]
     Indication: NEURITIS
     Dosage: 50 MG, 2X/DAY
  5. VICODIN [Concomitant]
     Indication: RESTLESS LEGS SYNDROME
     Dosage: 5/500
     Route: 048

REACTIONS (5)
  - VAGINAL DISCHARGE [None]
  - VULVOVAGINAL PAIN [None]
  - MALAISE [None]
  - VAGINAL INFLAMMATION [None]
  - VULVOVAGINAL BURNING SENSATION [None]
